FAERS Safety Report 6527258-7 (Version None)
Quarter: 2010Q1

REPORT INFORMATION
  Report Type: 
  Country: None (occurrence: None)
  Receive Date: 20100105
  Receipt Date: 20091223
  Transmission Date: 20100710
  Serious: Yes (Other)
  Sender: FDA-Public Use
  Company Number: AU-PFIZER INC-2009295823

PATIENT
  Age: 55 Year
  Sex: Male
  Weight: 110 kg

DRUGS (2)
  1. CAVERJECT IMPULSE [Suspect]
     Indication: ERECTILE DYSFUNCTION
     Dosage: 10 UG, UNK
     Route: 058
  2. CIALIS [Concomitant]
     Indication: ERECTILE DYSFUNCTION
     Dosage: 20 MG, AS NEEDED
     Route: 048

REACTIONS (1)
  - PROSTATIC SPECIFIC ANTIGEN INCREASED [None]
